FAERS Safety Report 8522670 (Version 28)
Quarter: 2015Q4

REPORT INFORMATION
  Report Type: Spontaneous
  Country: US (occurrence: US)
  Receive Date: 20120419
  Receipt Date: 20151105
  Transmission Date: 20160305
  Serious: Yes (Hospitalization, Other)
  Sender: FDA-Public Use
  Company Number: US-GLAXOSMITHKLINE-A0974124A

PATIENT
  Age: 50 Year
  Sex: Female
  Weight: 105 kg

DRUGS (16)
  1. FLOLAN [Suspect]
     Active Substance: EPOPROSTENOL SODIUM
     Dosage: 10 NG/KG/MIN CONTINUOUS
  2. FLOLAN [Suspect]
     Active Substance: EPOPROSTENOL SODIUM
     Dosage: 11 NG/KG/MIN
  3. REVATIO [Concomitant]
     Active Substance: SILDENAFIL CITRATE
     Route: 048
  4. LETAIRIS [Concomitant]
     Active Substance: AMBRISENTAN
  5. FLOLAN [Suspect]
     Active Substance: EPOPROSTENOL SODIUM
     Dosage: UNK
     Dates: start: 20080930
  6. FLOLAN [Suspect]
     Active Substance: EPOPROSTENOL SODIUM
     Dosage: 16 DF, CO
     Route: 042
  7. FLOLAN [Suspect]
     Active Substance: EPOPROSTENOL SODIUM
     Dosage: 16 DF, CO
     Dates: start: 20120809
  8. HEPARIN [Concomitant]
     Active Substance: HEPARIN SODIUM
  9. FLOLAN [Suspect]
     Active Substance: EPOPROSTENOL SODIUM
     Indication: PULMONARY ARTERIAL HYPERTENSION
     Dosage: CONCENTRATION 30,000 NG/MLPUMP RATE 50 ML/DAYVIAL STRENGTH 1.5 MGFU-20 NG/KG/MIN CONTINUOUSLY, [...]
     Route: 042
     Dates: start: 20080930
  10. FLOLAN [Suspect]
     Active Substance: EPOPROSTENOL SODIUM
     Dosage: 10 NG/KG/MIN CO
  11. FLOLAN [Suspect]
     Active Substance: EPOPROSTENOL SODIUM
     Indication: PRODUCT USED FOR UNKNOWN INDICATION
     Route: 042
  12. WARFARIN [Concomitant]
     Active Substance: WARFARIN
  13. FLOLAN [Suspect]
     Active Substance: EPOPROSTENOL SODIUM
     Dosage: UNK
     Dates: start: 20080930
  14. FLOLAN [Suspect]
     Active Substance: EPOPROSTENOL SODIUM
     Dosage: 20 NG/KG/MIN CONTINUOUS
  15. ADCIRCA [Concomitant]
     Active Substance: TADALAFIL
  16. FLOLAN [Suspect]
     Active Substance: EPOPROSTENOL SODIUM
     Dosage: UNK, CO

REACTIONS (13)
  - Pyrexia [Unknown]
  - Malaise [Unknown]
  - Device occlusion [Unknown]
  - Cough [Unknown]
  - Upper respiratory tract infection [Unknown]
  - Central venous catheterisation [Unknown]
  - Medical device complication [Recovered/Resolved]
  - Tooth infection [Unknown]
  - Nasopharyngitis [Unknown]
  - Muscle strain [Unknown]
  - Weight decreased [Unknown]
  - Gingivitis [Unknown]
  - Jugular vein distension [Unknown]

NARRATIVE: CASE EVENT DATE: 20150202
